FAERS Safety Report 23235605 (Version 4)
Quarter: 2023Q4

REPORT INFORMATION
  Report Type: Spontaneous
  Country: BR (occurrence: BR)
  Receive Date: 20231128
  Receipt Date: 20231214
  Transmission Date: 20240110
  Serious: Yes (Other)
  Sender: FDA-Public Use
  Company Number: BR-PFIZER INC-PV202300190191

PATIENT
  Age: 66 Year
  Sex: Male

DRUGS (2)
  1. SPIRONOLACTONE [Suspect]
     Active Substance: SPIRONOLACTONE
     Indication: Adrenal adenoma
     Dosage: UNK, HIGH DOSES
  2. SPIRONOLACTONE [Suspect]
     Active Substance: SPIRONOLACTONE
     Indication: Hypertension

REACTIONS (3)
  - Sexual dysfunction [Unknown]
  - Drug ineffective [Recovered/Resolved]
  - Gynaecomastia [Unknown]
